FAERS Safety Report 18505318 (Version 1)
Quarter: 2020Q4

REPORT INFORMATION
  Report Type: Spontaneous
  Country: None (occurrence: PL)
  Receive Date: 20201116
  Receipt Date: 20201116
  Transmission Date: 20210114
  Serious: Yes (Other)
  Sender: FDA-Public Use
  Company Number: PL-ORION CORPORATION ORION PHARMA-TREX2020-2273

PATIENT
  Age: 65 Year
  Sex: Male

DRUGS (3)
  1. INFLIXIMAB [Suspect]
     Active Substance: INFLIXIMAB
     Indication: PSORIASIS
     Dosage: DOSE: 5 MG PER KG BODY WEIGHT
     Route: 065
     Dates: end: 201906
  2. METHOTREXATE. [Suspect]
     Active Substance: METHOTREXATE
     Indication: PSORIASIS
     Route: 065
     Dates: start: 201311, end: 201404
  3. ACITRETIN. [Suspect]
     Active Substance: ACITRETIN
     Indication: PSORIASIS
     Route: 065
     Dates: start: 201311, end: 201404

REACTIONS (8)
  - Hepatic steatosis [Unknown]
  - Cholangiocarcinoma [Unknown]
  - Tuberculin test positive [Unknown]
  - Pulmonary fibrosis [Unknown]
  - Tonsillar inflammation [Unknown]
  - Hepatic cancer [Unknown]
  - Drug ineffective [Unknown]
  - Psoriasis [Unknown]

NARRATIVE: CASE EVENT DATE: 2014
